FAERS Safety Report 13917689 (Version 2)
Quarter: 2017Q3

REPORT INFORMATION
  Report Type: Spontaneous
  Country: AU (occurrence: AU)
  Receive Date: 20170829
  Receipt Date: 20170908
  Transmission Date: 20171127
  Serious: Yes (Hospitalization)
  Sender: FDA-Public Use
  Company Number: AU-B.I. PHARMACEUTICALS,INC./RIDGEFIELD-2017-BI-046850

PATIENT
  Sex: Male

DRUGS (3)
  1. CATAPRESAN [Suspect]
     Active Substance: CLONIDINE
     Dosage: UNIT DOSE: 750 MCG (5 X 150 MCG) IN AM AND 10 TABLETS IN PM
     Route: 065
  2. CATAPRESAN [Suspect]
     Active Substance: CLONIDINE
     Indication: SLEEP DISORDER
     Route: 065
  3. DEXAMPHETAMINE [Suspect]
     Active Substance: AMPHETAMINE
     Indication: PRODUCT USED FOR UNKNOWN INDICATION
     Route: 065

REACTIONS (4)
  - Overdose [Unknown]
  - Incorrect dose administered [Unknown]
  - Off label use [Unknown]
  - Drug dependence [Unknown]
